FAERS Safety Report 21164137 (Version 1)
Quarter: 2022Q3

REPORT INFORMATION
  Report Type: Spontaneous
  Country: NO (occurrence: NO)
  Receive Date: 20220803
  Receipt Date: 20220803
  Transmission Date: 20221027
  Serious: Yes (Life-Threatening, Disabling, Other)
  Sender: FDA-Public Use
  Company Number: None

PATIENT
  Age: 39 Year
  Sex: Female
  Weight: 50 kg

DRUGS (5)
  1. ESCITALOPRAM [Suspect]
     Active Substance: ESCITALOPRAM OXALATE
     Indication: Depression
     Dosage: FORM STRENGTH : 5 MG , UNIT DOSE : 5 MG , FREQUENCY TIME : 1 DAY
  2. ESCITALOPRAM [Suspect]
     Active Substance: ESCITALOPRAM OXALATE
     Dosage: FORM STRENGTH : 5 MG , UNIT DOSE : 10 MG , FREQUENCY TIME : 1 DAY
  3. OMEGA 3 [Concomitant]
     Active Substance: CAPSAICIN
     Indication: Product used for unknown indication
  4. HYDROXYZINE [Concomitant]
     Active Substance: HYDROXYZINE HYDROCHLORIDE
     Indication: Product used for unknown indication
     Dosage: UNIT DOSE : 25 MG , FREQUENCY TIME : 8 HOURS
  5. CHLORPROTHIXENE [Concomitant]
     Active Substance: CHLORPROTHIXENE
     Indication: Product used for unknown indication
     Dosage: UNIT DOSE : 25 MG , FREQUENCY TIME : 8 HOURS , ADDITIONAL INFORMATION : N05AF03 - CHLORPROTIXENE - O

REACTIONS (1)
  - Liver injury [Not Recovered/Not Resolved]
